FAERS Safety Report 6646645-X (Version None)
Quarter: 2010Q1

REPORT INFORMATION
  Report Type: 
  Country: None (occurrence: None)
  Receive Date: 20100322
  Receipt Date: 20100322
  Transmission Date: 20100710
  Serious: No
  Sender: FDA-Public Use
  Company Number: None

PATIENT
  Age: 91 Year
  Sex: Male

DRUGS (1)
  1. LISINOPRIL [Suspect]
     Indication: HYPERTENSION
     Dosage: 5 MG EVERY DAY PO
     Route: 048
     Dates: start: 20091202, end: 20091204

REACTIONS (5)
  - CARDIAC FAILURE CONGESTIVE [None]
  - HYPONATRAEMIA [None]
  - URINE ODOUR ABNORMAL [None]
  - URINE OUTPUT DECREASED [None]
  - WEIGHT INCREASED [None]
